FAERS Safety Report 7783117-3 (Version None)
Quarter: 2011Q3

REPORT INFORMATION
  Report Type: 
  Country: None (occurrence: None)
  Receive Date: 20110927
  Receipt Date: 20110927
  Transmission Date: 20111222
  Serious: Yes (Hospitalization)
  Sender: FDA-Public Use
  Company Number: None

PATIENT
  Age: 69 Year
  Sex: Female
  Weight: 42.9 kg

DRUGS (1)
  1. LISINOPRIL [Suspect]
     Dosage: MG EVERY DAY PO
     Route: 048

REACTIONS (2)
  - ANGIOEDEMA [None]
  - ANAPHYLACTIC REACTION [None]
